FAERS Safety Report 26116642 (Version 1)
Quarter: 2025Q4

REPORT INFORMATION
  Report Type: Spontaneous
  Country: CA (occurrence: CA)
  Receive Date: 20251203
  Receipt Date: 20251203
  Transmission Date: 20260117
  Serious: Yes (Hospitalization)
  Sender: AMGEN
  Company Number: CA-002147023-NVSC2025CA182931

PATIENT
  Sex: Female

DRUGS (1)
  1. AIMOVIG [Suspect]
     Active Substance: ERENUMAB-AOOE
     Indication: Migraine
     Dosage: 140 MG, QMO
     Route: 065

REACTIONS (4)
  - Head injury [Unknown]
  - Device defective [Unknown]
  - Drug dose omission by device [Unknown]
  - Device delivery system issue [Unknown]
